FAERS Safety Report 5781478-8 (Version None)
Quarter: 2008Q2

REPORT INFORMATION
  Report Type: 
  Country: None (occurrence: None)
  Receive Date: 20080623
  Receipt Date: 20080613
  Transmission Date: 20081010
  Serious: No
  Sender: FDA-Public Use
  Company Number: US-BAYER-200825605NA

PATIENT
  Age: 33 Year
  Sex: Female
  Weight: 125 kg

DRUGS (1)
  1. ULTRAVIST 370 [Suspect]
     Indication: ANGIOGRAM
     Dosage: TOTAL DAILY DOSE: 110 ML  UNIT DOSE: 150 ML
     Route: 042
     Dates: start: 20080613, end: 20080613

REACTIONS (3)
  - DYSPNOEA [None]
  - URTICARIA [None]
  - VOMITING [None]
